FAERS Safety Report 14705767 (Version 1)
Quarter: 2018Q2

REPORT INFORMATION
  Report Type: Spontaneous
  Country: JP (occurrence: JP)
  Receive Date: 20180402
  Receipt Date: 20180402
  Transmission Date: 20180711
  Serious: Yes (Other)
  Sender: FDA-Public Use
  Company Number: JP-GLENMARK PHARMACEUTICALS-2018GMK033777

PATIENT
  Sex: Male

DRUGS (13)
  1. TOPIRAMATE. [Suspect]
     Active Substance: TOPIRAMATE
     Dosage: 200 MG, QD,INCREMENTS OF 50 MG/DAY FOR 2 WEEKS
     Route: 065
  2. CARBAMAZEPINE. [Concomitant]
     Active Substance: CARBAMAZEPINE
     Indication: PARTIAL SEIZURES
     Dosage: UNK
     Route: 065
  3. PHENYTOIN. [Concomitant]
     Active Substance: PHENYTOIN
     Dosage: 375 MG, QD
     Route: 065
  4. TOPIRAMATE. [Suspect]
     Active Substance: TOPIRAMATE
     Dosage: 100 MG, QD
     Route: 065
  5. PHENYTOIN. [Concomitant]
     Active Substance: PHENYTOIN
     Dosage: 325 MG, QD
     Route: 065
  6. CLOBAZAM [Concomitant]
     Active Substance: CLOBAZAM
     Indication: PARTIAL SEIZURES
     Dosage: UNK
     Route: 065
  7. ACETAZOLAMIDE. [Concomitant]
     Active Substance: ACETAZOLAMIDE
     Indication: PARTIAL SEIZURES
     Dosage: 500 MG, QD
     Route: 065
  8. ZONISAMIDE. [Suspect]
     Active Substance: ZONISAMIDE
     Indication: PARTIAL SEIZURES
     Dosage: UNK
     Route: 065
  9. VALPROATE [Concomitant]
     Active Substance: VALPROIC ACID
     Indication: PARTIAL SEIZURES
     Dosage: UNK
     Route: 065
  10. PHENYTOIN. [Concomitant]
     Active Substance: PHENYTOIN
     Indication: PARTIAL SEIZURES
     Dosage: 450 MG, QD
     Route: 065
  11. TOPIRAMATE. [Suspect]
     Active Substance: TOPIRAMATE
     Indication: PARTIAL SEIZURES
     Dosage: 100 MG, QD
     Route: 065
  12. PHENYTOIN. [Concomitant]
     Active Substance: PHENYTOIN
     Dosage: 400 MG, QD
     Route: 065
  13. PHENOBARBITAL. [Concomitant]
     Active Substance: PHENOBARBITAL
     Indication: PARTIAL SEIZURES
     Dosage: UNK
     Route: 065

REACTIONS (2)
  - Neutropenia [Recovered/Resolved]
  - Agranulocytosis [Recovered/Resolved]
